FAERS Safety Report 8127078-6 (Version None)
Quarter: 2012Q1

REPORT INFORMATION
  Report Type: 
  Country: None (occurrence: None)
  Receive Date: 20120210
  Receipt Date: 20120201
  Transmission Date: 20120608
  Serious: Yes (Hospitalization, Disabling, Other)
  Sender: FDA-Public Use
  Company Number: NO-JNJFOC-20120112752

PATIENT
  Sex: Male

DRUGS (3)
  1. NOZINAN [Suspect]
     Indication: SLEEP DISORDER
     Route: 065
     Dates: start: 20070101
  2. REMICADE [Suspect]
     Indication: PSORIASIS
     Route: 042
     Dates: start: 20070101
  3. METHOTREXATE [Concomitant]
     Indication: PSORIASIS
     Route: 065

REACTIONS (1)
  - COGNITIVE DISORDER [None]
